FAERS Safety Report 6223019-7 (Version None)
Quarter: 2009Q2

REPORT INFORMATION
  Report Type: 
  Country: None (occurrence: None)
  Receive Date: 20090611
  Receipt Date: 20090608
  Transmission Date: 20091009
  Serious: Yes (Disabling)
  Sender: FDA-Public Use
  Company Number: ES-MERCK-0905ESP00048

PATIENT
  Age: 80 Year
  Sex: Male

DRUGS (1)
  1. PROSCAR [Suspect]
     Indication: BENIGN PROSTATIC HYPERPLASIA
     Route: 048
     Dates: start: 20090401, end: 20090401

REACTIONS (1)
  - ERYTHEMA MULTIFORME [None]
